FAERS Safety Report 9610820 (Version 2)
Quarter: 2014Q1

REPORT INFORMATION
  Report Type: Spontaneous
  Country: IT (occurrence: IT)
  Receive Date: 20131009
  Receipt Date: 20140221
  Transmission Date: 20141002
  Serious: Yes (Other)
  Sender: FDA-Public Use
  Company Number: IT-ELI_LILLY_AND_COMPANY-IT201310000648

PATIENT
  Age: 63 Year
  Sex: Female

DRUGS (3)
  1. ALIMTA [Suspect]
     Indication: NON-SMALL CELL LUNG CANCER RECURRENT
     Dosage: 770 MG, CYCLICAL
     Route: 042
     Dates: start: 20130223, end: 20130412
  2. CYANOCOBALAMIN [Concomitant]
  3. FOLIC ACID [Concomitant]

REACTIONS (3)
  - Hypocalcaemia [Recovered/Resolved]
  - Leukopenia [Recovered/Resolved]
  - Neutrophil count decreased [Recovered/Resolved]
